FAERS Safety Report 7151471-1 (Version None)
Quarter: 2010Q4

REPORT INFORMATION
  Report Type: 
  Country: None (occurrence: None)
  Receive Date: 20101210
  Receipt Date: 20101202
  Transmission Date: 20110411
  Serious: Yes (Hospitalization, Disabling)
  Sender: FDA-Public Use
  Company Number: CA-ASTRAZENECA-2010SE56301

PATIENT
  Age: 879 Month
  Sex: Female

DRUGS (13)
  1. FASLODEX [Suspect]
     Indication: BREAST CANCER
     Dosage: RECEIVED THE FIRST INJECTION
     Route: 030
     Dates: start: 20101108
  2. NITROGLYCERIN [Concomitant]
     Indication: ANGINA PECTORIS
     Route: 061
  3. LIPITOR [Concomitant]
     Indication: BLOOD CHOLESTEROL INCREASED
     Route: 048
  4. PRANDASE [Concomitant]
     Indication: DIABETES MELLITUS
     Route: 048
     Dates: end: 20101101
  5. GLICLAZIDE [Concomitant]
     Indication: DIABETES MELLITUS
     Route: 048
     Dates: end: 20101101
  6. TYLENOL W/ CODEINE [Concomitant]
     Indication: BACK PAIN
     Dosage: PRN
     Route: 048
  7. MULTI-VITAMIN [Concomitant]
     Indication: NUTRITIONAL SUPPORT
     Dosage: DAILY
     Route: 048
  8. CALTRATE WITH VITAMIN D [Concomitant]
     Indication: NUTRITIONAL SUPPORT
     Dosage: DAILY
     Route: 048
  9. VITAMIN D [Concomitant]
     Indication: NUTRITIONAL SUPPORT
     Dosage: DAILY
     Route: 048
  10. ASCORBIC ACID [Concomitant]
     Indication: NUTRITIONAL SUPPORT
     Dosage: DAILY
     Route: 048
  11. VITAMIN E [Concomitant]
     Indication: NUTRITIONAL SUPPORT
     Dosage: DAILY
     Route: 048
  12. DIAMICRON MR [Concomitant]
  13. LASIX [Concomitant]

REACTIONS (4)
  - BLOOD GLUCOSE DECREASED [None]
  - DECREASED APPETITE [None]
  - NAUSEA [None]
  - OEDEMA PERIPHERAL [None]
